FAERS Safety Report 13261049 (Version 1)
Quarter: 2017Q1

REPORT INFORMATION
  Report Type: Spontaneous
  Country: US (occurrence: US)
  Receive Date: 20170222
  Receipt Date: 20170222
  Transmission Date: 20170428
  Serious: No
  Sender: FDA-Public Use
  Company Number: US-SA-2016SA067851

PATIENT
  Age: 70 Year
  Sex: Female

DRUGS (1)
  1. GAVISCON [Suspect]
     Active Substance: ALUMINUM HYDROXIDE\MAGNESIUM CARBONATE
     Indication: DYSPEPSIA
     Route: 065

REACTIONS (7)
  - Gingival discomfort [Recovered/Resolved]
  - Oral discomfort [Recovered/Resolved]
  - Oral pain [Recovered/Resolved]
  - Stomatitis [Recovered/Resolved]
  - Gingival disorder [Recovered/Resolved]
  - Product quality issue [Unknown]
  - Drug interaction [Unknown]
